FAERS Safety Report 8008960-7 (Version None)
Quarter: 2011Q4

REPORT INFORMATION
  Report Type: 
  Country: None (occurrence: None)
  Receive Date: 20111227
  Receipt Date: 20111223
  Transmission Date: 20120403
  Serious: Yes (Hospitalization, Other)
  Sender: FDA-Public Use
  Company Number: DE-BAYER-2011-117612

PATIENT
  Age: 52 Year
  Sex: Female

DRUGS (2)
  1. LYRICA [Concomitant]
     Dosage: 75 MG, BID
  2. BETASERON [Suspect]
     Indication: RELAPSING-REMITTING MULTIPLE SCLEROSIS
     Dosage: UNK
     Dates: start: 19950101, end: 20110701

REACTIONS (5)
  - NECROTISING FASCIITIS [None]
  - INJECTION SITE ABSCESS [None]
  - CELLULITIS [None]
  - SKIN NECROSIS [None]
  - ERYSIPELAS [None]
